FAERS Safety Report 5625673-7 (Version None)
Quarter: 2008Q1

REPORT INFORMATION
  Report Type: 
  Country: None (occurrence: None)
  Receive Date: 20080214
  Receipt Date: 20080204
  Transmission Date: 20080703
  Serious: Yes (Other)
  Sender: FDA-Public Use
  Company Number: US-JNJFOC-20080200977

PATIENT
  Age: 77 Year
  Sex: Female
  Weight: 58.06 kg

DRUGS (4)
  1. TYLENOL (CAPLET) [Suspect]
     Route: 048
  2. TYLENOL (CAPLET) [Suspect]
     Indication: PAIN
     Dosage: 1300 MG 2-3 TIMES A DAY
     Route: 048
  3. ATENOLOL [Concomitant]
     Indication: BLOOD PRESSURE MANAGEMENT
  4. COUMADIN [Concomitant]
     Indication: ANTICOAGULANT THERAPY

REACTIONS (2)
  - ANXIETY [None]
  - HALLUCINATION [None]
